FAERS Safety Report 6518904-2 (Version None)
Quarter: 2009Q4

REPORT INFORMATION
  Report Type: 
  Country: None (occurrence: None)
  Receive Date: 20091228
  Receipt Date: 20091214
  Transmission Date: 20100525
  Serious: Yes (Hospitalization)
  Sender: FDA-Public Use
  Company Number: US-ROCHE-676276

PATIENT
  Sex: Male

DRUGS (8)
  1. PEG-INTERFERON ALFA 2A (RO 25-8310) [Suspect]
     Indication: HEPATITIS C
     Route: 058
     Dates: start: 20081210, end: 20091111
  2. RIBAVIRIN [Suspect]
     Indication: HEPATITIS C
     Dosage: 600 MG IN MORNING, 400 MG IN EVENING
     Route: 048
     Dates: start: 20081210, end: 20091118
  3. VX-950 [Suspect]
     Indication: HEPATITIS C
     Route: 048
     Dates: start: 20081210, end: 20090303
  4. BACLOFEN [Concomitant]
     Dates: start: 20090101
  5. LOPERAMIDE [Concomitant]
     Route: 048
     Dates: start: 20090107, end: 20091210
  6. LISINOPRIL [Concomitant]
     Indication: HYPERTENSION
     Dates: start: 20071101
  7. PREDNISONE [Concomitant]
     Dosage: OTHER INDICATION: SHORTNESS OF BREATH
     Dates: start: 20091116, end: 20091120
  8. PREDNISONE [Concomitant]
     Dates: start: 20091128

REACTIONS (1)
  - CARDIAC FAILURE CONGESTIVE [None]
